FAERS Safety Report 5001505-5 (Version None)
Quarter: 2006Q2

REPORT INFORMATION
  Report Type: 
  Country: None (occurrence: None)
  Receive Date: 20060512
  Receipt Date: 20060404
  Transmission Date: 20061013
  Serious: Yes (Other)
  Sender: FDA-Public Use
  Company Number: GB-BOEHRINGER INGELHEIM PHARMACEUTICALS, INC.-2006-UK-01792PF

PATIENT
  Age: 62 Year
  Sex: Male

DRUGS (3)
  1. SPIRIVA [Suspect]
     Indication: CHRONIC OBSTRUCTIVE PULMONARY DISEASE
     Route: 055
     Dates: start: 20051110, end: 20060323
  2. PREDNISOLONE [Concomitant]
     Indication: ASBESTOSIS
     Dosage: ON AND OFF
  3. SYMBICORT [Concomitant]
     Indication: ASBESTOSIS
     Dates: start: 20040401

REACTIONS (1)
  - HEADACHE [None]
